FAERS Safety Report 13918280 (Version 1)
Quarter: 2017Q3

REPORT INFORMATION
  Report Type: Spontaneous
  Country: US (occurrence: US)
  Receive Date: 20170829
  Receipt Date: 20170829
  Transmission Date: 20171127
  Serious: No
  Sender: FDA-Public Use
  Company Number: US-SA-2017SA093907

PATIENT
  Age: 44 Year
  Sex: Male
  Weight: 81.8 kg

DRUGS (15)
  1. SIMVASTATIN. [Concomitant]
     Active Substance: SIMVASTATIN
     Dates: start: 20130304
  2. FABRAZYME [Suspect]
     Active Substance: AGALSIDASE BETA
     Indication: FABRY^S DISEASE
     Route: 041
  3. NORMAL SALINE [Concomitant]
     Active Substance: SODIUM CHLORIDE
     Route: 041
     Dates: start: 20170427
  4. L-M-X [Concomitant]
     Dosage: FOR INFUSION
     Dates: start: 20161216
  5. CYMBALTA [Concomitant]
     Active Substance: DULOXETINE HYDROCHLORIDE
     Dates: start: 20160715
  6. ASPIRIN. [Concomitant]
     Active Substance: ASPIRIN
     Dates: start: 20130304
  7. DRONABINOL. [Concomitant]
     Active Substance: DRONABINOL
     Dates: start: 20160520
  8. DIPHENHYDRAMINE. [Concomitant]
     Active Substance: DIPHENHYDRAMINE
     Dates: start: 20170427
  9. DIVALPROEX SODIUM. [Concomitant]
     Active Substance: DIVALPROEX SODIUM
     Dates: start: 20160705
  10. CALCIUM [Concomitant]
     Active Substance: CALCIUM
     Dates: start: 20150619
  11. LYRICA [Concomitant]
     Active Substance: PREGABALIN
     Dates: start: 20150731
  12. VENTOLIN [Concomitant]
     Active Substance: ALBUTEROL SULFATE
     Dosage: DOSE:1 PUFF(S)
     Dates: start: 20150619
  13. PULMICORT TURBUHALER [Concomitant]
     Active Substance: BUDESONIDE
     Dosage: 1 DOSE
     Dates: start: 20160715
  14. FABRAZYME [Suspect]
     Active Substance: AGALSIDASE BETA
     Indication: LIPIDOSIS
     Route: 041
  15. EPINEPHRINE. [Concomitant]
     Active Substance: EPINEPHRINE
     Dates: start: 20170427

REACTIONS (2)
  - Fatigue [Unknown]
  - Burning sensation [Unknown]

NARRATIVE: CASE EVENT DATE: 20170515
